FAERS Safety Report 24301369 (Version 5)
Quarter: 2025Q1

REPORT INFORMATION
  Report Type: Spontaneous
  Country: DE (occurrence: DE)
  Receive Date: 20240910
  Receipt Date: 20250327
  Transmission Date: 20250408
  Serious: Yes (Other)
  Sender: AMGEN
  Company Number: DE-AMGEN-DEUSP2024157619

PATIENT
  Age: 70 Year
  Sex: Female

DRUGS (14)
  1. PROLIA [Suspect]
     Active Substance: DENOSUMAB
     Indication: Osteoporosis postmenopausal
     Dosage: 60 MILLIGRAM, Q6MO
     Route: 058
     Dates: start: 2022, end: 20240624
  2. Calcium sandoz d osteo [Concomitant]
  3. SPIRIVA RESPIMAT [Concomitant]
     Active Substance: TIOTROPIUM BROMIDE
  4. FOSTER [Concomitant]
     Active Substance: BECLOMETHASONE\FORMOTEROL
  5. ALBUTEROL [Concomitant]
     Active Substance: ALBUTEROL
  6. ACETYLCYSTEINE [Concomitant]
     Active Substance: ACETYLCYSTEINE
  7. IVABRADINE [Concomitant]
     Active Substance: IVABRADINE
     Indication: Cardiac disorder
  8. NEBIVOLOL [Concomitant]
     Active Substance: NEBIVOLOL
     Indication: Cardiac disorder
  9. ASCORBIC ACID\ZINC [Concomitant]
     Active Substance: ASCORBIC ACID\ZINC
  10. LITHIUM OROTATE [Concomitant]
     Active Substance: LITHIUM OROTATE
  11. Cefasel nutri [Concomitant]
  12. CURCUMIN [Concomitant]
     Active Substance: CURCUMIN
  13. BROMELAINS [Concomitant]
     Active Substance: BROMELAINS
  14. CHOLECALCIFEROL [Concomitant]
     Active Substance: CHOLECALCIFEROL
     Dosage: 20,000 EVERY 4 WEEKS

REACTIONS (14)
  - Cauda equina syndrome [Unknown]
  - Osteochondrosis [Unknown]
  - Stomatitis [Unknown]
  - Pain in jaw [Unknown]
  - Scoliosis [Unknown]
  - Toothache [Unknown]
  - Sacroiliitis [Unknown]
  - Mastication disorder [Unknown]
  - Anosmia [Unknown]
  - Ageusia [Unknown]
  - Depression [Unknown]
  - Osteitis [Unknown]
  - Headache [Unknown]
  - General physical health deterioration [Unknown]

NARRATIVE: CASE EVENT DATE: 20220701
